FAERS Safety Report 9402953 (Version 1)
Quarter: 2013Q3

REPORT INFORMATION
  Report Type: Spontaneous
  Country: US (occurrence: None)
  Receive Date: 20130715
  Receipt Date: 20130715
  Transmission Date: 20140515
  Serious: Yes (Other)
  Sender: FDA-Public Use
  Company Number: None

PATIENT
  Age: 36 None
  Sex: Female
  Weight: 111 kg

DRUGS (2)
  1. GADOPENTETATE DIMEGLUMINE [Suspect]
     Route: 042
     Dates: start: 20130318
  2. GADOPENTETATE DIMEGLUMINE [Suspect]
     Route: 042
     Dates: start: 20130318

REACTIONS (2)
  - Throat irritation [None]
  - Sneezing [None]
